FAERS Safety Report 17631348 (Version 1)
Quarter: 2020Q2

REPORT INFORMATION
  Report Type: Spontaneous
  Country: US (occurrence: US)
  Receive Date: 20200406
  Receipt Date: 20200406
  Transmission Date: 20200713
  Serious: No
  Sender: FDA-Public Use
  Company Number: None

PATIENT
  Age: 29 Year
  Sex: Male
  Weight: 69.75 kg

DRUGS (1)
  1. FINASTERIDE. [Suspect]
     Active Substance: FINASTERIDE
     Indication: ANDROGENETIC ALOPECIA
     Dosage: ?          QUANTITY:1 TABLET(S);OTHER FREQUENCY:1/4 PER DAY;?
     Route: 048
     Dates: start: 20191101, end: 20200401

REACTIONS (2)
  - Breast pain [None]
  - Breast mass [None]

NARRATIVE: CASE EVENT DATE: 20200406
